FAERS Safety Report 24687658 (Version 2)
Quarter: 2025Q1

REPORT INFORMATION
  Report Type: Spontaneous
  Country: JP (occurrence: JP)
  Receive Date: 20241202
  Receipt Date: 20250131
  Transmission Date: 20250409
  Serious: Yes (Hospitalization)
  Sender: BAYER HEALTHCARE PHARMACEUTICALS INC.
  Company Number: JP-BAYER-2024A138071

PATIENT
  Age: 66 Year
  Sex: Female

DRUGS (1)
  1. IOPROMIDE [Suspect]
     Active Substance: IOPROMIDE
     Indication: Computerised tomogram heart
     Dates: start: 20240926, end: 20240926

REACTIONS (7)
  - Anaphylactic reaction [Recovered/Resolved]
  - Musculoskeletal stiffness [Recovering/Resolving]
  - Cardio-respiratory arrest [Recovering/Resolving]
  - Loss of consciousness [Recovering/Resolving]
  - Erythema [Recovering/Resolving]
  - Nausea [Recovering/Resolving]
  - Vomiting [Recovered/Resolved]

NARRATIVE: CASE EVENT DATE: 20240926
